FAERS Safety Report 8240631-4 (Version None)
Quarter: 2012Q1

REPORT INFORMATION
  Report Type: 
  Country: None (occurrence: None)
  Receive Date: 20120328
  Receipt Date: 20120320
  Transmission Date: 20120608
  Serious: No
  Sender: FDA-Public Use
  Company Number: US-BAYER-2012-027426

PATIENT
  Sex: Female

DRUGS (1)
  1. LEVITRA [Suspect]
     Indication: ERECTILE DYSFUNCTION
     Route: 048

REACTIONS (1)
  - ERECTILE DYSFUNCTION [None]
